FAERS Safety Report 20910104 (Version 1)
Quarter: 2022Q2

REPORT INFORMATION
  Report Type: Spontaneous
  Country: US (occurrence: None)
  Receive Date: 20220602
  Receipt Date: 20220602
  Transmission Date: 20220721
  Serious: Yes (Other)
  Sender: FDA-Public Use
  Company Number: None

PATIENT
  Sex: Male

DRUGS (15)
  1. ENBREL [Suspect]
     Active Substance: ETANERCEPT
     Indication: Psoriatic arthropathy
     Dosage: FREQUENCY : WEEKLY;?
     Route: 058
     Dates: start: 20210123
  2. CHLORHEX GLU SOL [Concomitant]
  3. CLOBETASOL CRE [Concomitant]
  4. DULOXETINE HYDROCHLORIDE [Concomitant]
     Active Substance: DULOXETINE HYDROCHLORIDE
  5. ENBREL SRCLK INJ [Concomitant]
  6. FOLIC ACID TAB [Concomitant]
  7. LISINOPRIL [Concomitant]
     Active Substance: LISINOPRIL
  8. MELOXICAM TAB [Concomitant]
  9. PANTOPRAZOLE TAB [Concomitant]
  10. PREDNISONE [Concomitant]
     Active Substance: PREDNISONE
  11. SILDENAFIL [Concomitant]
     Active Substance: SILDENAFIL
  12. SUCRALFATE TAB [Concomitant]
  13. SULINDAC TAB [Concomitant]
  14. SUPREP BOWL SOL PREP KIT [Concomitant]
  15. VIVITROL INJ [Concomitant]

REACTIONS (2)
  - Knee operation [None]
  - Therapy interrupted [None]
